FAERS Safety Report 8122908-6 (Version None)
Quarter: 2012Q1

REPORT INFORMATION
  Report Type: 
  Country: None (occurrence: None)
  Receive Date: 20120208
  Receipt Date: 20120131
  Transmission Date: 20120608
  Serious: Yes (Other)
  Sender: FDA-Public Use
  Company Number: US-BAYER-2012-009940

PATIENT
  Age: 28 Year
  Sex: Female

DRUGS (2)
  1. MIRENA [Suspect]
     Dosage: 20 MCG/24HR, CONT
     Route: 015
     Dates: start: 20050801, end: 20111221
  2. MIRENA [Suspect]
     Indication: CONTRACEPTION
     Dosage: 20 MCG/24HR, CONT
     Route: 015
     Dates: start: 20050801, end: 20100801

REACTIONS (16)
  - VOMITING [None]
  - STRESS [None]
  - STAPHYLOCOCCAL INFECTION [None]
  - BACK PAIN [None]
  - SKIN ODOUR ABNORMAL [None]
  - FOLLICULITIS [None]
  - FATIGUE [None]
  - HEADACHE [None]
  - BREAST MASS [None]
  - GASTROOESOPHAGEAL REFLUX DISEASE [None]
  - DEPRESSION [None]
  - MOOD SWINGS [None]
  - HYPERHIDROSIS [None]
  - ACNE [None]
  - BREAST CYST [None]
  - MALAISE [None]
